FAERS Safety Report 7352121-1 (Version None)
Quarter: 2011Q1

REPORT INFORMATION
  Report Type: 
  Country: None (occurrence: None)
  Receive Date: 20110315
  Receipt Date: 20110310
  Transmission Date: 20110831
  Serious: Yes (Other)
  Sender: FDA-Public Use
  Company Number: BR-TYCO HEALTHCARE/MALLINCKRODT-T201100578

PATIENT
  Age: 51 Year
  Sex: Female

DRUGS (3)
  1. OPTIRAY 350 [Suspect]
     Indication: COMPUTERISED TOMOGRAM
     Dosage: 50 ML, SINGLE
     Route: 042
     Dates: start: 20110304, end: 20110304
  2. FLUOXETINE [Concomitant]
     Indication: DEPRESSION
     Dosage: UNK
  3. PROFLAM [Concomitant]
     Indication: INFLAMMATION
     Dosage: UNK

REACTIONS (5)
  - URTICARIA [None]
  - DIARRHOEA [None]
  - LOSS OF CONSCIOUSNESS [None]
  - VOMITING [None]
  - HEADACHE [None]
